FAERS Safety Report 9730652 (Version 1)
Quarter: 2013Q4

REPORT INFORMATION
  Report Type: Spontaneous
  Country: GB (occurrence: GB)
  Receive Date: 20131205
  Receipt Date: 20131205
  Transmission Date: 20140711
  Serious: Yes (Hospitalization)
  Sender: FDA-Public Use
  Company Number: GB-009507513-1312GBR000225

PATIENT
  Age: 79 Year
  Sex: Male
  Weight: 68 kg

DRUGS (12)
  1. MIRTAZAPINE [Suspect]
     Dosage: UNK
     Dates: start: 20131115
  2. BECLOMETHASONE DIPROPIONATE [Concomitant]
     Dosage: UNK
     Dates: start: 20130912, end: 20131010
  3. BETAMETHASONE SODIUM PHOSPHATE [Concomitant]
     Dosage: UNK
     Route: 048
     Dates: start: 20131022, end: 20131023
  4. BETNESOL [Concomitant]
     Dosage: UNK
     Dates: start: 20130626, end: 20131004
  5. CITALOPRAM [Concomitant]
     Dosage: UNK
     Dates: start: 20131115
  6. DOXAZOSIN MESYLATE [Concomitant]
     Dosage: UNK
     Dates: start: 20131025
  7. DOXYCYCLINE [Concomitant]
     Dosage: UNK
     Dates: start: 20130912, end: 20130919
  8. LAXIDO [Concomitant]
     Dosage: UNK
     Dates: start: 20131108
  9. OMEPRAZOLE [Concomitant]
     Dosage: UNK
     Route: 048
     Dates: start: 20131022
  10. PREDNISOLONE [Concomitant]
     Dosage: UNK
     Dates: start: 20130924, end: 20131022
  11. TERAZOSIN HYDROCHLORIDE [Concomitant]
     Dosage: UNK
     Dates: start: 20130723, end: 20131112
  12. ZOPICLONE [Concomitant]
     Dosage: UNK
     Dates: start: 20130924

REACTIONS (1)
  - Anaphylactic reaction [Recovered/Resolved]
